FAERS Safety Report 25187218 (Version 1)
Quarter: 2025Q2

REPORT INFORMATION
  Report Type: Spontaneous
  Country: ES (occurrence: ES)
  Receive Date: 20250411
  Receipt Date: 20250411
  Transmission Date: 20250716
  Serious: Yes (Other)
  Sender: TAKEDA
  Company Number: ES-SUN PHARMACEUTICAL INDUSTRIES LTD-2025R1-501081

PATIENT
  Age: 87 Year
  Sex: Female

DRUGS (1)
  1. ANAGRELIDE [Suspect]
     Active Substance: ANAGRELIDE
     Indication: Myeloproliferative neoplasm

REACTIONS (2)
  - Drug intolerance [Unknown]
  - Therapeutic response decreased [Unknown]
